FAERS Safety Report 9828098 (Version 1)
Quarter: 2013Q4

REPORT INFORMATION
  Report Type: Spontaneous
  Country: US (occurrence: None)
  Receive Date: 20131120
  Receipt Date: 20131120
  Transmission Date: 20140711
  Serious: Yes (Other)
  Sender: FDA-Public Use
  Company Number: 1000048431

PATIENT
  Age: 62 Year
  Sex: Female

DRUGS (3)
  1. VIIBRYD [Suspect]
     Route: 048
     Dates: start: 20130829, end: 20130903
  2. FLONASE (FLUTICASONE PROPIONATE (FLUTICASONE PROPIONATE) [Concomitant]
  3. TINIDAZOLE [Suspect]
     Indication: BACTERIAL INFECTION

REACTIONS (2)
  - Diarrhoea [None]
  - Headache [None]
